FAERS Safety Report 13012425 (Version 2)
Quarter: 2017Q2

REPORT INFORMATION
  Report Type: Spontaneous
  Country: FR (occurrence: FR)
  Receive Date: 20161209
  Receipt Date: 20170403
  Transmission Date: 20170830
  Serious: Yes (Other)
  Sender: FDA-Public Use
  Company Number: FR-SA-2016SA221048

PATIENT
  Age: 79 Year
  Sex: Male

DRUGS (22)
  1. BETADINE [Suspect]
     Active Substance: POVIDONE-IODINE
     Indication: PREOPERATIVE CARE
     Route: 003
     Dates: start: 20161019, end: 20161020
  2. PERFALGAN [Suspect]
     Active Substance: ACETAMINOPHEN
     Indication: PAIN
     Route: 042
     Dates: start: 20161020
  3. TAMSULOSIN [Suspect]
     Active Substance: TAMSULOSIN
     Indication: BENIGN PROSTATIC HYPERPLASIA
     Route: 048
  4. DEXAMETHASONE. [Suspect]
     Active Substance: DEXAMETHASONE
     Dosage: 20 MG/5 ML STRENGTH
     Route: 042
     Dates: start: 20161020, end: 20161020
  5. DESLORATADINE. [Suspect]
     Active Substance: DESLORATADINE
     Indication: SEASONAL ALLERGY
     Dosage: 5 MG STRENGTH
     Route: 048
  6. KETAMINE [Suspect]
     Active Substance: KETAMINE
     Route: 042
     Dates: start: 20161020, end: 20161020
  7. ONDANSETRON [Suspect]
     Active Substance: ONDANSETRON
     Route: 042
     Dates: start: 20161020, end: 20161020
  8. PANTOPRAZOLE [Suspect]
     Active Substance: PANTOPRAZOLE
     Route: 048
     Dates: start: 20161020
  9. ORAMORPH [Suspect]
     Active Substance: MORPHINE SULFATE
     Indication: PAIN
     Route: 048
     Dates: start: 20161020
  10. ALPRAZOLAM. [Suspect]
     Active Substance: ALPRAZOLAM
     Indication: ANXIETY
     Route: 048
     Dates: start: 20161020, end: 20161020
  11. ALLOPURINOL. [Suspect]
     Active Substance: ALLOPURINOL
     Route: 048
  12. LERCANIDIPINE [Suspect]
     Active Substance: LERCANIDIPINE
     Indication: HYPERTENSION
     Route: 048
  13. AVODART [Suspect]
     Active Substance: DUTASTERIDE
     Indication: BENIGN PROSTATIC HYPERPLASIA
     Route: 048
  14. ESOMEPRAZOLE [Suspect]
     Active Substance: ESOMEPRAZOLE
     Route: 048
     Dates: end: 20161019
  15. MOXYDAR [Suspect]
     Active Substance: ALUMINUM HYDROXIDE\ALUMINUM PHOSPHATE\GUAR GUM\MAGNESIUM HYDROXIDE
     Dosage: TABLET FOR ORAL SUSPENSION
     Route: 048
  16. AZANTAC [Suspect]
     Active Substance: RANITIDINE HYDROCHLORIDE
     Dosage: 300 MG STRENGTH
     Route: 048
     Dates: start: 20161020, end: 20161020
  17. LOVENOX [Suspect]
     Active Substance: ENOXAPARIN SODIUM
     Route: 058
     Dates: start: 20161021, end: 20161030
  18. EFFERALGAN [Suspect]
     Active Substance: ACETAMINOPHEN
     Indication: PAIN
     Dosage: 500 MG STRENGTH
     Route: 048
  19. MOMETASONE [Suspect]
     Active Substance: MOMETASONE
     Indication: SEASONAL ALLERGY
     Dosage: 50 MCG STRENGTH
     Route: 045
  20. GLUCOSE [Suspect]
     Active Substance: DEXTROSE
     Dosage: 5% STRENGTH
     Route: 042
     Dates: start: 20161020
  21. KETOPROFENE [Suspect]
     Active Substance: KETOPROFEN
     Dosage: 100 MG/4 ML STRENGTH
     Route: 042
     Dates: start: 20161020, end: 20161020
  22. DROPERIDOL. [Suspect]
     Active Substance: DROPERIDOL
     Route: 042
     Dates: start: 20161020, end: 20161020

REACTIONS (3)
  - Dermatitis bullous [Recovered/Resolved]
  - Thermal burn [Recovered/Resolved]
  - Erythema [Recovered/Resolved]

NARRATIVE: CASE EVENT DATE: 20161021
